FAERS Safety Report 4390046-4 (Version None)
Quarter: 2004Q2

REPORT INFORMATION
  Report Type: 
  Country: None (occurrence: None)
  Receive Date: 20040630
  Receipt Date: 20040614
  Transmission Date: 20050107
  Serious: Yes (Hospitalization)
  Sender: FDA-Public Use
  Company Number: 237115

PATIENT
  Age: 58 Year
  Sex: Female
  Weight: 58 kg

DRUGS (4)
  1. NOVOLIN N [Suspect]
     Indication: ILL-DEFINED DISORDER
     Dosage: 120 QD
  2. NOVOLIN N [Suspect]
  3. NOVOLIN N [Suspect]
  4. NOVOLIN N [Suspect]

REACTIONS (4)
  - DIZZINESS [None]
  - DRUG INEFFECTIVE [None]
  - PHARMACEUTICAL PRODUCT COMPLAINT [None]
  - VOMITING [None]
